FAERS Safety Report 25853268 (Version 1)
Quarter: 2025Q3

REPORT INFORMATION
  Report Type: Spontaneous
  Country: GB (occurrence: GB)
  Receive Date: 20250926
  Receipt Date: 20250926
  Transmission Date: 20251021
  Serious: Yes (Other)
  Sender: ELI LILLY AND COMPANY
  Company Number: None

PATIENT
  Sex: Female

DRUGS (4)
  1. MOUNJARO [Suspect]
     Active Substance: TIRZEPATIDE
     Indication: Product used for unknown indication
     Dosage: 2.5MG WEEKLY
     Route: 065
  2. MOUNJARO [Suspect]
     Active Substance: TIRZEPATIDE
     Indication: Product used for unknown indication
     Dosage: 2.5MG WEEKLY
     Route: 065
  3. PROGESTERONE [Concomitant]
     Active Substance: PROGESTERONE
     Indication: Adenomyosis
     Dosage: UNK UNK, DAILY
  4. PROGESTERONE [Concomitant]
     Active Substance: PROGESTERONE
     Indication: Endometriosis

REACTIONS (5)
  - Intermenstrual bleeding [Unknown]
  - Vulval haemorrhage [Recovering/Resolving]
  - Heavy menstrual bleeding [Unknown]
  - Dysmenorrhoea [Unknown]
  - Off label use [Unknown]
